FAERS Safety Report 11621085 (Version 1)
Quarter: 2015Q4

REPORT INFORMATION
  Report Type: Spontaneous
  Country: US (occurrence: US)
  Receive Date: 20151012
  Receipt Date: 20151012
  Transmission Date: 20160304
  Serious: No
  Sender: FDA-Public Use
  Company Number: GXBR2015US001994

PATIENT
  Age: 82 Year
  Sex: Male
  Weight: 81.63 kg

DRUGS (4)
  1. WARFARIN [Concomitant]
     Active Substance: WARFARIN
     Indication: FACTOR V LEIDEN CARRIER
     Dosage: UNK DF, UNK
     Dates: start: 1999
  2. TAMSULOSIN HYDROCHLORIDE. [Suspect]
     Active Substance: TAMSULOSIN HYDROCHLORIDE
     Indication: BENIGN PROSTATIC HYPERPLASIA
     Dosage: 0.4 MG, QD
     Route: 048
     Dates: start: 2011
  3. LYRICA [Concomitant]
     Active Substance: PREGABALIN
     Indication: LYMPHOEDEMA
     Dosage: UNK DF, UNK
     Dates: start: 2012
  4. ZOLPIDEM [Concomitant]
     Active Substance: ZOLPIDEM\ZOLPIDEM TARTRATE
     Indication: INSOMNIA
     Dosage: UNK DF, UNK
     Dates: start: 20150816

REACTIONS (4)
  - Cataract [Recovered/Resolved]
  - Visual acuity reduced [Recovered/Resolved]
  - Sputum discoloured [Not Recovered/Not Resolved]
  - Insomnia [Recovered/Resolved]

NARRATIVE: CASE EVENT DATE: 201505
